FAERS Safety Report 4806877-X (Version None)
Quarter: 2005Q4

REPORT INFORMATION
  Report Type: 
  Country: None (occurrence: None)
  Receive Date: 20051020
  Receipt Date: 20051020
  Transmission Date: 20060501
  Serious: No
  Sender: FDA-Public Use
  Company Number: None

PATIENT
  Age: 48 Year
  Sex: Female
  Weight: 54.4316 kg

DRUGS (2)
  1. FEMRING [Suspect]
     Indication: HORMONE REPLACEMENT THERAPY
     Dosage: ONE PATCH APPLIED EVERY 3 MONTHS TRANSDERMAL
     Route: 062
     Dates: start: 20040803, end: 20051007
  2. PROMETRIUM [Concomitant]

REACTIONS (3)
  - DRUG EFFECT DECREASED [None]
  - MOOD ALTERED [None]
  - PHARMACEUTICAL PRODUCT COMPLAINT [None]
